FAERS Safety Report 7462330-9 (Version None)
Quarter: 2011Q2

REPORT INFORMATION
  Report Type: 
  Country: None (occurrence: None)
  Receive Date: 20110506
  Receipt Date: 20110422
  Transmission Date: 20111010
  Serious: Yes (Other)
  Sender: FDA-Public Use
  Company Number: JP-JNJFOC-20110409908

PATIENT
  Age: 93 Year
  Sex: Female

DRUGS (3)
  1. FENTANYL [Suspect]
     Indication: CANCER PAIN
     Route: 062
  2. LASIX [Concomitant]
     Route: 065
  3. FENTANYL [Suspect]
     Dosage: AT 2 O'CLOCK
     Route: 062

REACTIONS (7)
  - DYSPNOEA [None]
  - HALLUCINATION [None]
  - PNEUMONIA [None]
  - DELIRIUM [None]
  - SOMNOLENCE [None]
  - URINE OUTPUT DECREASED [None]
  - INCOHERENT [None]
